FAERS Safety Report 5098978-9 (Version None)
Quarter: 2006Q3

REPORT INFORMATION
  Report Type: 
  Country: None (occurrence: None)
  Receive Date: 20060907
  Receipt Date: 20040514
  Transmission Date: 20061208
  Serious: Yes (Hospitalization)
  Sender: FDA-Public Use
  Company Number: US-BOEHRINGER INGELHEIM PHARMACEUTICALS, INC.-2004-BP-03805BP

PATIENT
  Sex: Male
  Weight: 76.7 kg

DRUGS (7)
  1. TIPRANAVIR / RITONAVIR CAPSULES [Suspect]
     Indication: HIV INFECTION
     Dosage: TPV 1000MG/RTV 400MG
     Route: 048
     Dates: start: 20031208, end: 20040514
  2. EPIVIR [Concomitant]
     Indication: ANTIVIRAL DRUG LEVEL
     Route: 048
     Dates: start: 20031208, end: 20040514
  3. VIREAD [Concomitant]
     Indication: ANTIVIRAL DRUG LEVEL
     Route: 048
     Dates: start: 20031208, end: 20040314
  4. FUZEON [Concomitant]
     Indication: ANTIVIRAL DRUG LEVEL
     Route: 058
     Dates: start: 20031208, end: 20040514
  5. RISPERDAL [Concomitant]
     Indication: PSYCHOTIC DISORDER
     Dates: start: 19981025
  6. ZOLOFT [Concomitant]
     Indication: PSYCHOTIC DISORDER
     Dates: start: 20031023
  7. ANCEFT [Concomitant]
     Indication: PSYCHOTIC DISORDER
     Dates: start: 20031023

REACTIONS (4)
  - CONVULSION [None]
  - DEMENTIA [None]
  - DISORIENTATION [None]
  - MENTAL STATUS CHANGES [None]
